FAERS Safety Report 17269390 (Version 2)
Quarter: 2020Q4

REPORT INFORMATION
  Report Type: Spontaneous
  Country: JP (occurrence: JP)
  Receive Date: 20200114
  Receipt Date: 20201222
  Transmission Date: 20210113
  Serious: Yes (Death)
  Sender: FDA-Public Use
  Company Number: JP-ASTRAZENECA-2020SE04890

PATIENT
  Age: 26883 Day
  Sex: Female
  Weight: 64 kg

DRUGS (23)
  1. MINOCYCLINE HYDROCHLORIDE. [Concomitant]
     Active Substance: MINOCYCLINE HYDROCHLORIDE
     Indication: SKIN DISORDER PROPHYLAXIS
     Route: 048
     Dates: start: 20190130
  2. ALDACTONE A [Concomitant]
     Active Substance: SPIRONOLACTONE
     Indication: OEDEMA
     Route: 048
     Dates: start: 20190522, end: 20190715
  3. NEXIUM [Concomitant]
     Active Substance: ESOMEPRAZOLE MAGNESIUM
     Route: 048
     Dates: start: 20190201, end: 20190316
  4. RIZE [Concomitant]
     Active Substance: CLOTIAZEPAM
     Indication: INSOMNIA
     Route: 048
  5. NORVASC [Concomitant]
     Active Substance: AMLODIPINE BESYLATE
     Indication: HYPERTENSION
     Route: 048
  6. LYRICA [Concomitant]
     Active Substance: PREGABALIN
     Indication: HYPOAESTHESIA
     Route: 048
     Dates: start: 20190507, end: 20190627
  7. TEGRETOL [Concomitant]
     Active Substance: CARBAMAZEPINE
     Indication: HYPOAESTHESIA
     Route: 048
     Dates: start: 20190507, end: 20190516
  8. TRAMCET [Concomitant]
     Active Substance: ACETAMINOPHEN\TRAMADOL
     Indication: PAIN
     Route: 048
     Dates: start: 20190513, end: 20190516
  9. NOVAMIN [Concomitant]
     Indication: NAUSEA
     Route: 048
     Dates: start: 20190513, end: 20190528
  10. LASIX [Concomitant]
     Active Substance: FUROSEMIDE
     Indication: OEDEMA
     Route: 048
     Dates: start: 20190522, end: 20190715
  11. TERPERAN [Concomitant]
     Active Substance: METOCLOPRAMIDE HYDROCHLORIDE
     Indication: NAUSEA
     Route: 048
     Dates: start: 20190707, end: 20190715
  12. SYMPROIC [Concomitant]
     Active Substance: NALDEMEDINE
     Indication: CONSTIPATION PROPHYLAXIS
     Route: 048
     Dates: start: 20190707, end: 20190814
  13. TAGRISSO [Suspect]
     Active Substance: OSIMERTINIB
     Indication: NON-SMALL CELL LUNG CANCER
     Route: 048
     Dates: start: 20190201, end: 20190312
  14. TAKECAB [Concomitant]
     Active Substance: VONOPRAZAN FUMARATE
     Route: 048
     Dates: start: 20190317
  15. LOXONIN [Concomitant]
     Active Substance: LOXOPROFEN SODIUM
     Indication: PAIN
     Route: 048
     Dates: start: 20190430, end: 20190512
  16. NARUSUS [Concomitant]
     Active Substance: HYDROMORPHONE HYDROCHLORIDE
     Indication: PAIN
     Route: 048
     Dates: start: 20190517
  17. TAGRISSO [Suspect]
     Active Substance: OSIMERTINIB
     Indication: NON-SMALL CELL LUNG CANCER
     Route: 048
     Dates: start: 20190707, end: 20190802
  18. TAGRISSO [Suspect]
     Active Substance: OSIMERTINIB
     Indication: NON-SMALL CELL LUNG CANCER
     Route: 048
     Dates: start: 20190815, end: 20191227
  19. MYSLEE [Concomitant]
     Active Substance: ZOLPIDEM TARTRATE
     Indication: INSOMNIA
     Route: 048
  20. TAGRISSO [Suspect]
     Active Substance: OSIMERTINIB
     Indication: NON-SMALL CELL LUNG CANCER
     Route: 048
     Dates: start: 20190513, end: 20190630
  21. CRESTOR [Concomitant]
     Active Substance: ROSUVASTATIN CALCIUM
     Indication: HYPERCHOLESTEROLAEMIA
     Route: 048
  22. TELMISARTAN. [Concomitant]
     Active Substance: TELMISARTAN
     Indication: HYPERTENSION
     Route: 048
     Dates: start: 20190314
  23. MAGMITT [Concomitant]
     Active Substance: MAGNESIUM OXIDE
     Indication: CONSTIPATION
     Route: 048
     Dates: start: 20190513

REACTIONS (10)
  - Interstitial lung disease [Fatal]
  - Hypoaesthesia [Unknown]
  - Malaise [Unknown]
  - Cardiac failure [Fatal]
  - Glossodynia [Unknown]
  - Perineal pain [Unknown]
  - Adrenal insufficiency [Unknown]
  - Palmar-plantar erythrodysaesthesia syndrome [Recovered/Resolved]
  - Disseminated intravascular coagulation [Fatal]
  - Paronychia [Recovered/Resolved]

NARRATIVE: CASE EVENT DATE: 20190312
